FAERS Safety Report 18570368 (Version 1)
Quarter: 2020Q4

REPORT INFORMATION
  Report Type: Report from Study
  Country: GB (occurrence: GB)
  Receive Date: 20201202
  Receipt Date: 20201202
  Transmission Date: 20210114
  Serious: Yes (Life-Threatening, Hospitalization)
  Sender: FDA-Public Use
  Company Number: GB-GW PHARMA-201905GBGW1439

PATIENT

DRUGS (28)
  1. EPIDIOLEX [Suspect]
     Active Substance: CANNABIDIOL
     Indication: TUBEROUS SCLEROSIS COMPLEX
     Dosage: 48 MG/KG, 2770 MILLIGRAM, QD
     Route: 048
     Dates: start: 20190103, end: 20190511
  2. LAMICTAL [Concomitant]
     Active Substance: LAMOTRIGINE
     Indication: EPILEPSY
     Dosage: 150 MILLIGRAM, BID
     Route: 048
     Dates: start: 20080501
  3. RANITIDINE. [Concomitant]
     Active Substance: RANITIDINE
     Indication: GASTROOESOPHAGEAL REFLUX PROPHYLAXIS
     Dosage: 50 MILLIGRAM, TID
     Route: 042
     Dates: start: 20190511, end: 20190512
  4. HARTMANS [Concomitant]
     Indication: BLOOD PRESSURE MEASUREMENT
     Dosage: 500 MILLILITER, PRN
     Route: 042
     Dates: start: 20190512, end: 20190512
  5. CALCIUM GLUCONATE. [Concomitant]
     Active Substance: CALCIUM GLUCONATE
     Indication: SEIZURE
     Dosage: 10 MILLILITER, SINGLE
     Route: 042
     Dates: start: 20190512, end: 20190512
  6. PHOSPHATE SANDOZ [Concomitant]
     Active Substance: SODIUM PHOSPHATE, MONOBASIC, ANHYDROUS
     Indication: HYPERCALCAEMIA
     Dosage: 1 DOSAGE FORM, BID
     Route: 048
     Dates: start: 20190516, end: 20190522
  7. QUETIAPINE. [Concomitant]
     Active Substance: QUETIAPINE
     Indication: DELUSION
     Dosage: 25 MILLIGRAM, BID
     Route: 048
     Dates: start: 20190513, end: 20190516
  8. GLUCOSE 10% BAXTER [Concomitant]
     Indication: SEIZURE
     Dosage: 100 MILLILITER, SINGLE
     Route: 042
     Dates: start: 20190511, end: 20190511
  9. ACICLOVIR [Concomitant]
     Active Substance: ACYCLOVIR
     Indication: MENINGITIS
     Dosage: 500 MILLIGRAM, TID
     Route: 042
     Dates: start: 20190512, end: 20190514
  10. HARTMANS [Concomitant]
     Indication: FLUID REPLACEMENT
     Dosage: 100 MILLILITER, PRN
     Route: 042
     Dates: start: 20190511, end: 20190512
  11. KEPPRA [Concomitant]
     Active Substance: LEVETIRACETAM
     Indication: EPILEPSY
     Dosage: 1750 MILLIGRAM, BID
     Route: 048
     Dates: start: 20080101
  12. SALINE [SODIUM CHLORIDE] [Concomitant]
     Active Substance: SODIUM CHLORIDE
     Indication: FLUID REPLACEMENT
     Dosage: 1000 MILLILITER, SINGLE
     Route: 042
     Dates: start: 20190511, end: 20190511
  13. HARTMANS [Concomitant]
     Dosage: 80 MILLILITER, PRN
     Route: 042
     Dates: start: 20190513, end: 20190514
  14. FRISIUM [Concomitant]
     Active Substance: CLOBAZAM
     Indication: EPILEPSY
     Dosage: 10 MILLIGRAM, PRN
     Route: 048
     Dates: start: 20101101
  15. PABRINEX [ASCORBIC ACID;BENZYL ALCOHOL;NICOTINAMIDE;PYRIDOXINE HYDROCH [Concomitant]
     Indication: VITAMIN C DEFICIENCY
  16. METARAMINOL [Concomitant]
     Active Substance: METARAMINOL
     Indication: BLOOD PRESSURE MEASUREMENT
     Dosage: 20 MILLIGRAM, PRN
     Route: 042
     Dates: start: 20190511, end: 20190511
  17. EPIDIOLEX [Suspect]
     Active Substance: CANNABIDIOL
     Dosage: 48 MG/KG, 2770 MILLIGRAM, QD
     Route: 048
     Dates: start: 20190517, end: 20190727
  18. LAMICTAL [Concomitant]
     Active Substance: LAMOTRIGINE
     Dosage: 175 MILLIGRAM, BID
     Route: 048
     Dates: start: 20190604
  19. LAMICTAL [Concomitant]
     Active Substance: LAMOTRIGINE
     Dosage: 200 MILLIGRAM, BID
     Route: 048
     Dates: start: 20190731
  20. FYCOMPA [Concomitant]
     Active Substance: PERAMPANEL
     Indication: EPILEPSY
     Dosage: 6 MILLIGRAM, QD
     Route: 048
     Dates: start: 20151101
  21. PABRINEX [ASCORBIC ACID;BENZYL ALCOHOL;NICOTINAMIDE;PYRIDOXINE HYDROCH [Concomitant]
     Indication: VITAMIN B COMPLEX DEFICIENCY
     Dosage: 20 MILLILITER, BID
     Route: 042
     Dates: start: 20190612, end: 20190615
  22. PARACETAMOL [Concomitant]
     Active Substance: ACETAMINOPHEN
     Indication: ANALGESIC THERAPY
     Dosage: 1 GRAM, PRN
     Route: 042
     Dates: start: 20190513, end: 20190704
  23. PARACETAMOL [Concomitant]
     Active Substance: ACETAMINOPHEN
     Dosage: 1 GRAM, PRN
     Route: 048
     Dates: start: 20190513, end: 20190704
  24. CYCLIZINE [Concomitant]
     Active Substance: CYCLIZINE
     Indication: MOTION SICKNESS
     Dosage: 50 MILLIGRAM, PRN
     Route: 042
     Dates: start: 20190518, end: 20190519
  25. PROPOFOL. [Concomitant]
     Active Substance: PROPOFOL
     Indication: ENDOTRACHEAL INTUBATION
     Dosage: 10 MILLIGRAM, PRN
     Route: 042
     Dates: start: 20190511, end: 20190512
  26. ALFENTANIL. [Concomitant]
     Active Substance: ALFENTANIL
     Indication: SEDATION
     Dosage: 25 MILLIGRAM, PRN
     Route: 042
     Dates: start: 20190511, end: 20190511
  27. CLEXANE [Concomitant]
     Active Substance: ENOXAPARIN SODIUM
     Indication: ANTICOAGULANT THERAPY
     Dosage: 40 MILLIGRAM, QD
     Route: 058
     Dates: start: 20190512, end: 20190606
  28. CEFTRIAXONE. [Concomitant]
     Active Substance: CEFTRIAXONE
     Indication: MENINGITIS
     Dosage: 2 GRAM, BID
     Route: 042
     Dates: start: 20190511, end: 20190512

REACTIONS (3)
  - Alcohol use [Recovered/Resolved with Sequelae]
  - Status epilepticus [Recovered/Resolved with Sequelae]
  - Memory impairment [Recovering/Resolving]

NARRATIVE: CASE EVENT DATE: 20190510
